FAERS Safety Report 7535255-8 (Version None)
Quarter: 2011Q2

REPORT INFORMATION
  Report Type: 
  Country: None (occurrence: None)
  Receive Date: 20110609
  Receipt Date: 20090903
  Transmission Date: 20111010
  Serious: No
  Sender: FDA-Public Use
  Company Number: 2009BI028279

PATIENT
  Sex: Female

DRUGS (2)
  1. TYSABRI [Suspect]
     Indication: MULTIPLE SCLEROSIS
     Route: 042
     Dates: start: 20070731
  2. BENADRYL [Concomitant]
     Indication: PREMEDICATION

REACTIONS (4)
  - WEIGHT INCREASED [None]
  - MEMORY IMPAIRMENT [None]
  - FATIGUE [None]
  - WEIGHT FLUCTUATION [None]
